FAERS Safety Report 4288207-8 (Version None)
Quarter: 2004Q1

REPORT INFORMATION
  Report Type: 
  Country: None (occurrence: None)
  Receive Date: 20040209
  Receipt Date: 20030905
  Transmission Date: 20041129
  Serious: No
  Sender: FDA-Public Use
  Company Number: US-GLAXOSMITHKLINE-A0424872A

PATIENT
  Age: 25 Year
  Sex: Female

DRUGS (1)
  1. PAXIL [Suspect]
     Route: 065

REACTIONS (4)
  - ASTHENIA [None]
  - FATIGUE [None]
  - NIGHTMARE [None]
  - PAIN [None]
